FAERS Safety Report 4972164-2 (Version None)
Quarter: 2006Q2

REPORT INFORMATION
  Report Type: 
  Country: None (occurrence: None)
  Receive Date: 20060413
  Receipt Date: 20060411
  Transmission Date: 20061013
  Serious: Yes (Other)
  Sender: FDA-Public Use
  Company Number: US-JNJFOC-20060401507

PATIENT
  Sex: Female
  Weight: 72.58 kg

DRUGS (1)
  1. LEVAQUIN [Suspect]
     Indication: SINUSITIS
     Route: 048

REACTIONS (5)
  - COAGULOPATHY [None]
  - DEPRESSION [None]
  - PAIN IN EXTREMITY [None]
  - PLATELET AGGREGATION ABNORMAL [None]
  - TENDONITIS [None]
